FAERS Safety Report 7686157-8 (Version None)
Quarter: 2011Q3

REPORT INFORMATION
  Report Type: 
  Country: None (occurrence: None)
  Receive Date: 20110816
  Receipt Date: 20110805
  Transmission Date: 20111222
  Serious: Yes (Other)
  Sender: FDA-Public Use
  Company Number: PHFR2011GB04645

PATIENT
  Sex: Male

DRUGS (1)
  1. TEGRETOL [Suspect]
     Route: 065

REACTIONS (2)
  - EPILEPSY [None]
  - POOR QUALITY DRUG ADMINISTERED [None]
